FAERS Safety Report 4608009-X (Version None)
Quarter: 2005Q1

REPORT INFORMATION
  Report Type: 
  Country: None (occurrence: None)
  Receive Date: 20050228
  Receipt Date: 20050131
  Transmission Date: 20050727
  Serious: No
  Sender: FDA-Public Use
  Company Number: FABR-10991

PATIENT
  Age: 51 Year
  Sex: Male
  Weight: 64.5 kg

DRUGS (3)
  1. FABRAZYME [Suspect]
     Indication: FABRY'S DISEASE
     Dosage: 65 MG Q2WKS  IV
     Route: 042
     Dates: start: 20041229
  2. LASIX [Concomitant]
  3. ALTACE [Concomitant]

REACTIONS (1)
  - ARTHRALGIA [None]
